FAERS Safety Report 5491514-4 (Version None)
Quarter: 2007Q4

REPORT INFORMATION
  Report Type: 
  Country: None (occurrence: None)
  Receive Date: 20071022
  Receipt Date: 20071010
  Transmission Date: 20080405
  Serious: Yes (Other)
  Sender: FDA-Public Use
  Company Number: PHBS2007US17150

PATIENT
  Age: 1 Day
  Sex: Female
  Weight: 1.3 kg

DRUGS (3)
  1. FEMARA [Suspect]
  2. FOLLICLE STIMULATING HORMONE, RECOMBINANT [Concomitant]
  3. GANIRELIX ACETATE INJECTION [Concomitant]

REACTIONS (3)
  - CAESAREAN SECTION [None]
  - DRUG EXPOSURE BEFORE PREGNANCY [None]
  - PREMATURE BABY [None]
